FAERS Safety Report 17181692 (Version 1)
Quarter: 2019Q4

REPORT INFORMATION
  Report Type: Spontaneous
  Country: SE (occurrence: SE)
  Receive Date: 20191220
  Receipt Date: 20191220
  Transmission Date: 20200122
  Serious: Yes (Hospitalization)
  Sender: FDA-Public Use
  Company Number: SE-TEVA-2019-SE-1154050

PATIENT
  Age: 34 Year
  Sex: Female

DRUGS (6)
  1. ZOPICLONE [Suspect]
     Active Substance: ZOPICLONE
     Route: 048
     Dates: start: 20181003, end: 20181003
  2. DULOXETINE. [Concomitant]
     Active Substance: DULOXETINE
     Dosage: ^90 MG/DAY^
  3. PROPAVAN [Suspect]
     Active Substance: PROPIOMAZINE
     Route: 048
     Dates: start: 20181003, end: 20181003
  4. QUETIAPINE. [Suspect]
     Active Substance: QUETIAPINE
     Dosage: ^300 MG DEPOT AND 300 MG COMMON TABLETS^
     Route: 048
     Dates: start: 20181003, end: 20181003
  5. RISPERDAL [Suspect]
     Active Substance: RISPERIDONE
     Route: 048
     Dates: start: 20181003, end: 20181003
  6. LERGIGAN 25 MG FILMDRAGERAD TABLETT [Suspect]
     Active Substance: PROMETHAZINE HYDROCHLORIDE
     Route: 048
     Dates: start: 20181003, end: 20181003

REACTIONS (4)
  - Intentional overdose [Unknown]
  - Hypopnoea [Unknown]
  - Electrocardiogram QT prolonged [Unknown]
  - Intentional self-injury [Unknown]

NARRATIVE: CASE EVENT DATE: 20181003
